FAERS Safety Report 8844909 (Version 1)
Quarter: 2012Q4

REPORT INFORMATION
  Report Type: 
  Country: US (occurrence: US)
  Receive Date: 20121017
  Receipt Date: 20121017
  Transmission Date: 20130627
  Serious: No
  Sender: FDA-Public Use
  Company Number: US-009507513-1210USA003769

PATIENT
  Sex: Female

DRUGS (6)
  1. SINGULAIR [Suspect]
     Indication: HYPERSENSITIVITY
     Dosage: 10 mg, qd
     Route: 048
     Dates: start: 2009
  2. PROAIR (ALBUTEROL SULFATE) [Concomitant]
  3. ESTRADIOL [Concomitant]
  4. PRAVASTATIN SODIUM [Concomitant]
  5. SEROQUEL [Concomitant]
  6. AMBIEN [Concomitant]

REACTIONS (1)
  - Therapeutic response decreased [Unknown]
